FAERS Safety Report 18686776 (Version 1)
Quarter: 2020Q4

REPORT INFORMATION
  Report Type: Spontaneous
  Country: IT (occurrence: IT)
  Receive Date: 20201230
  Receipt Date: 20201230
  Transmission Date: 20210114
  Serious: Yes (Other)
  Sender: FDA-Public Use
  Company Number: IT-SUN PHARMACEUTICAL INDUSTRIES LTD-2020RR-273604

PATIENT
  Age: 65 Year
  Sex: Male

DRUGS (4)
  1. TETRABENAZINE. [Suspect]
     Active Substance: TETRABENAZINE
     Dosage: 100 MILLIGRAM, DAILY
     Route: 065
  2. TETRABENAZINE. [Suspect]
     Active Substance: TETRABENAZINE
     Indication: HUNTINGTON^S DISEASE
     Dosage: 75 MILLIGRAM, DAILY
     Route: 065
  3. VENLAFAXINE [Concomitant]
     Active Substance: VENLAFAXINE HYDROCHLORIDE
     Indication: NEUROPSYCHIATRIC SYMPTOMS
     Dosage: UNK
     Route: 065
  4. VALPROATE [Concomitant]
     Active Substance: VALPROIC ACID
     Indication: NEUROPSYCHIATRIC SYMPTOMS
     Dosage: UNK
     Route: 065

REACTIONS (1)
  - Tardive dyskinesia [Recovering/Resolving]
